FAERS Safety Report 22287946 (Version 1)
Quarter: 2023Q2

REPORT INFORMATION
  Report Type: Spontaneous
  Country: US (occurrence: US)
  Receive Date: 20230505
  Receipt Date: 20230505
  Transmission Date: 20230721
  Serious: No
  Sender: FDA-Public Use
  Company Number: US-JNJFOC-20230509043

PATIENT
  Sex: Male
  Weight: 90.800 kg

DRUGS (1)
  1. SYMTUZA [Suspect]
     Active Substance: COBICISTAT\DARUNAVIR\EMTRICITABINE\TENOFOVIR ALAFENAMIDE
     Indication: Product used for unknown indication
     Dosage: 800MG/120
     Route: 048

REACTIONS (2)
  - Product dose omission issue [Unknown]
  - Depression [Unknown]

NARRATIVE: CASE EVENT DATE: 20230101
